FAERS Safety Report 4855566-4 (Version None)
Quarter: 2005Q4

REPORT INFORMATION
  Report Type: 
  Country: None (occurrence: None)
  Receive Date: 20051214
  Receipt Date: 20050922
  Transmission Date: 20060501
  Serious: Yes (Other)
  Sender: FDA-Public Use
  Company Number: 2005100736

PATIENT
  Age: 45 Year
  Sex: Female

DRUGS (6)
  1. ADRIAMYCIN PFS [Suspect]
     Indication: BREAST CANCER
     Dosage: 85 MG, INTRAVENOUS
     Route: 042
     Dates: start: 20030327, end: 20030623
  2. CYCLOPHOSPHAMIDE [Concomitant]
  3. KYTRIL [Concomitant]
  4. DECADRON [Concomitant]
  5. GRAN (FILGRASTIM) [Concomitant]
  6. TASUOMIN (TAMOXIFEN CITRATE) [Concomitant]

REACTIONS (1)
  - SICK SINUS SYNDROME [None]
